FAERS Safety Report 8533472-1 (Version None)
Quarter: 2012Q3

REPORT INFORMATION
  Report Type: 
  Country: None (occurrence: None)
  Receive Date: 20120724
  Receipt Date: 20120719
  Transmission Date: 20120928
  Serious: No
  Sender: FDA-Public Use
  Company Number: US-BAYER-2012-073405

PATIENT

DRUGS (1)
  1. ALEVE (CAPLET) [Suspect]
     Dosage: 3 DF, UNK

REACTIONS (1)
  - NO ADVERSE EVENT [None]
